FAERS Safety Report 7685448-4 (Version None)
Quarter: 2011Q3

REPORT INFORMATION
  Report Type: 
  Country: None (occurrence: None)
  Receive Date: 20110816
  Receipt Date: 20110811
  Transmission Date: 20111222
  Serious: Yes (Death)
  Sender: FDA-Public Use
  Company Number: FR-PFIZER INC-2011184638

PATIENT
  Age: 81 Year
  Sex: Female

DRUGS (8)
  1. XANAX [Concomitant]
  2. LASIX [Concomitant]
     Dosage: 20 MG, 1X/DAY
  3. ASPIRIN [Concomitant]
     Dosage: 75 MG, 1X/DAY
  4. RAMIPRIL [Concomitant]
     Dosage: 2.5 MG, 1X/DAY
  5. NEXIUM [Concomitant]
     Dosage: 20 MG, 1X/DAY
  6. ALDACTONE [Suspect]
     Dosage: 12.5 MG, 1X/DAY
     Route: 048
  7. NEBIVOLOL HCL [Suspect]
     Dosage: 5 MG, 1X/DAY
     Route: 048
  8. DIGOXIN [Suspect]
     Dosage: UNK

REACTIONS (1)
  - ATRIOVENTRICULAR BLOCK COMPLETE [None]
